FAERS Safety Report 9687893 (Version 1)
Quarter: 2013Q4

REPORT INFORMATION
  Report Type: Spontaneous
  Country: US (occurrence: US)
  Receive Date: 20131114
  Receipt Date: 20131114
  Transmission Date: 20140711
  Serious: No
  Sender: FDA-Public Use
  Company Number: US-PFIZER INC-2013320793

PATIENT
  Age: 85 Year
  Sex: Female
  Weight: 52.61 kg

DRUGS (1)
  1. ADVIL [Suspect]
     Dosage: 200 MG, THREE TIMES A DAY
     Dates: start: 201310, end: 20131102

REACTIONS (4)
  - Rash generalised [Not Recovered/Not Resolved]
  - Pruritus [Not Recovered/Not Resolved]
  - Pain [Not Recovered/Not Resolved]
  - Erythema [Not Recovered/Not Resolved]
